FAERS Safety Report 5613560-X (Version None)
Quarter: 2008Q1

REPORT INFORMATION
  Report Type: 
  Country: None (occurrence: None)
  Receive Date: 20080130
  Receipt Date: 20080116
  Transmission Date: 20080703
  Serious: Yes (Other)
  Sender: FDA-Public Use
  Company Number: 2008BI001384

PATIENT
  Age: 44 Year
  Sex: Female

DRUGS (8)
  1. AVONEX [Suspect]
     Indication: MULTIPLE SCLEROSIS
     Dosage: 30 UG; QW; IM
     Route: 030
     Dates: start: 20070525
  2. METFORMIN HCL [Concomitant]
  3. GLIPIZIDE [Concomitant]
  4. ACTOS [Concomitant]
  5. CLARITIN-D [Concomitant]
  6. NASONEX [Concomitant]
  7. ALBUTEROL [Concomitant]
  8. WELLBUTRIN [Concomitant]

REACTIONS (11)
  - ASTHMA [None]
  - CONDITION AGGRAVATED [None]
  - COUGH [None]
  - GAIT DISTURBANCE [None]
  - INJECTION SITE BRUISING [None]
  - INJECTION SITE HAEMORRHAGE [None]
  - SCAR EXCISION [None]
  - SINUS CONGESTION [None]
  - SINUSITIS [None]
  - UPPER RESPIRATORY TRACT INFECTION [None]
  - VERTIGO [None]
